FAERS Safety Report 18059456 (Version 1)
Quarter: 2020Q3

REPORT INFORMATION
  Report Type: Spontaneous
  Country: US (occurrence: US)
  Receive Date: 20200723
  Receipt Date: 20200723
  Transmission Date: 20201103
  Serious: No
  Sender: FDA-Public Use
  Company Number: US-PFIZER INC-2020280056

PATIENT
  Age: 47 Year
  Sex: Female

DRUGS (2)
  1. IBRANCE [Suspect]
     Active Substance: PALBOCICLIB
     Dosage: UNK
     Dates: start: 20200221, end: 20200630
  2. AFINITOR [Suspect]
     Active Substance: EVEROLIMUS

REACTIONS (2)
  - Positron emission tomogram abnormal [Unknown]
  - Fatigue [Unknown]
